FAERS Safety Report 4972886-3 (Version None)
Quarter: 2006Q2

REPORT INFORMATION
  Report Type: 
  Country: None (occurrence: None)
  Receive Date: 20060410
  Receipt Date: 20060320
  Transmission Date: 20061013
  Serious: Yes (Other)
  Sender: FDA-Public Use
  Company Number: US200603005424

PATIENT
  Age: 34 Year
  Sex: Male
  Weight: 127.9 kg

DRUGS (15)
  1. ZYPREXA [Suspect]
     Indication: SCHIZOPHRENIA, PARANOID TYPE
     Dosage: 5 MG, ORAL
     Route: 048
     Dates: start: 20040707
  2. ZESTRIL /USA/ (LISINOPRIL) [Concomitant]
  3. ZANTAC [Concomitant]
  4. SEROQUEL [Concomitant]
  5. NORCO [Concomitant]
  6. NEURONTIN [Concomitant]
  7. NASONEX [Concomitant]
  8. SINGULAIR [Concomitant]
  9. PREVACID [Concomitant]
  10. LOTREMIN (CLOTRIMAZOLE) [Concomitant]
  11. VERELAN (VERAPAMIL HYDROCHLORIDE) [Concomitant]
  12. AXERT [Concomitant]
  13. CATAPRES-TTS-2 /USA/ (CLONIDINE) [Concomitant]
  14. ACCUPRIL [Concomitant]
  15. FLEXERIL [Concomitant]

REACTIONS (6)
  - DELUSION [None]
  - DIABETES MELLITUS [None]
  - HAEMOGLOBIN ABNORMAL [None]
  - HALLUCINATION, AUDITORY [None]
  - RECTAL HAEMORRHAGE [None]
  - WEIGHT INCREASED [None]
